FAERS Safety Report 6622148-3 (Version None)
Quarter: 2010Q1

REPORT INFORMATION
  Report Type: 
  Country: None (occurrence: None)
  Receive Date: 20100309
  Receipt Date: 20100304
  Transmission Date: 20100710
  Serious: Yes (Other)
  Sender: FDA-Public Use
  Company Number: US-BRISTOL-MYERS SQUIBB COMPANY-14871180

PATIENT
  Age: 77 Year
  Sex: Male
  Weight: 73 kg

DRUGS (1)
  1. IXEMPRA KIT [Suspect]
     Indication: PROSTATE CANCER
     Dosage: CYCLE=21 DAYS; IV OVER 3 HOURS ON DAY1
     Route: 042
     Dates: start: 20020516, end: 20060228

REACTIONS (1)
  - LEUKAEMIA [None]
